FAERS Safety Report 4919093-8 (Version None)
Quarter: 2006Q1

REPORT INFORMATION
  Report Type: 
  Country: None (occurrence: None)
  Receive Date: 20060222
  Receipt Date: 20051121
  Transmission Date: 20060701
  Serious: Yes (Other)
  Sender: FDA-Public Use
  Company Number: GB-BRISTOL-MYERS SQUIBB COMPANY-13289970

PATIENT
  Age: 87 Year
  Sex: Female

DRUGS (2)
  1. TRAZODONE HCL [Suspect]
     Route: 048
     Dates: start: 19951201
  2. FYBOGEL [Concomitant]

REACTIONS (1)
  - HYPONATRAEMIA [None]
